FAERS Safety Report 14613206 (Version 2)
Quarter: 2018Q1

REPORT INFORMATION
  Report Type: Spontaneous
  Country: FI (occurrence: FI)
  Receive Date: 20180308
  Receipt Date: 20180316
  Transmission Date: 20180509
  Serious: Yes (Disabling)
  Sender: FDA-Public Use
  Company Number: FI-JNJFOC-20180302468

PATIENT
  Age: 50 Year
  Sex: Female
  Weight: 121 kg

DRUGS (2)
  1. STELARA [Suspect]
     Active Substance: USTEKINUMAB
     Indication: PSORIASIS
     Route: 058
     Dates: start: 201709
  2. STELARA [Suspect]
     Active Substance: USTEKINUMAB
     Indication: PSORIASIS
     Route: 058
     Dates: start: 20170110

REACTIONS (3)
  - Product use issue [Unknown]
  - Off label use [Unknown]
  - Myositis [Not Recovered/Not Resolved]

NARRATIVE: CASE EVENT DATE: 201709
